FAERS Safety Report 7575047-7 (Version None)
Quarter: 2011Q2

REPORT INFORMATION
  Report Type: 
  Country: None (occurrence: None)
  Receive Date: 20110627
  Receipt Date: 20110620
  Transmission Date: 20111010
  Serious: Yes (Congenital Anomaly, Other)
  Sender: FDA-Public Use
  Company Number: PHHY2010FR90142

PATIENT
  Sex: Female

DRUGS (1)
  1. GLEEVEC [Suspect]
     Dosage: FOETAL DRUG EXPOSURE VIA FATHER
     Route: 064

REACTIONS (7)
  - CONGENITAL HYDRONEPHROSIS [None]
  - PELVI-URETERIC OBSTRUCTION [None]
  - EAR INFECTION [None]
  - DRUG EXPOSURE DURING PREGNANCY [None]
  - DISEASE RECURRENCE [None]
  - PATERNAL DRUGS AFFECTING FOETUS [None]
  - PYELONEPHRITIS ACUTE [None]
